FAERS Safety Report 8436992-3 (Version None)
Quarter: 2012Q2

REPORT INFORMATION
  Report Type: 
  Country: None (occurrence: None)
  Receive Date: 20120323
  Receipt Date: 20110627
  Transmission Date: 20120825
  Serious: Yes (Other)
  Sender: FDA-Public Use
  Company Number: 163-21880-11064052

PATIENT
  Age: 80 Year
  Sex: Male

DRUGS (12)
  1. LENALIDOMIDE [Suspect]
     Indication: MULTIPLE MYELOMA
     Dosage: 25 MG, QD 21D/28D, PO; 10 MG, QD 21D/28D, PO; 5 MG, QD 21D/28D, PO
     Route: 048
     Dates: start: 20110627
  2. LENALIDOMIDE [Suspect]
     Indication: MULTIPLE MYELOMA
     Dosage: 25 MG, QD 21D/28D, PO; 10 MG, QD 21D/28D, PO; 5 MG, QD 21D/28D, PO
     Route: 048
     Dates: start: 20100101
  3. DECADRON [Concomitant]
  4. ZOCOR [Concomitant]
  5. INSULIN [Concomitant]
  6. AREDIA [Concomitant]
  7. ALPHAGAN [Concomitant]
  8. ZESTRIL [Concomitant]
  9. METFFORMIN HYDROCHLORIDE [Concomitant]
  10. HYDROCHLOROTHIAZIDE [Concomitant]
  11. MORPHINE [Concomitant]
  12. PERCOCET [Concomitant]

REACTIONS (1)
  - PANCYTOPENIA [None]
